FAERS Safety Report 8979114 (Version 1)
Quarter: 2012Q4

REPORT INFORMATION
  Report Type: 
  Country: US (occurrence: US)
  Receive Date: 20121221
  Receipt Date: 20121221
  Transmission Date: 20130627
  Serious: Yes (Hospitalization)
  Sender: FDA-Public Use
  Company Number: US-PFIZER INC-2012323247

PATIENT

DRUGS (4)
  1. LIPITOR [Suspect]
     Dosage: UNK
  2. NEURONTIN [Suspect]
     Dosage: UNK
  3. XALATAN [Suspect]
     Dosage: UNK
  4. ZOLOFT [Suspect]
     Dosage: UNK

REACTIONS (2)
  - Blood glucose decreased [Unknown]
  - Malaise [Unknown]
